FAERS Safety Report 9530009 (Version 2)
Quarter: 2013Q3

REPORT INFORMATION
  Report Type: Spontaneous
  Country: US (occurrence: US)
  Receive Date: 20130917
  Receipt Date: 20130917
  Transmission Date: 20140515
  Serious: Yes (Hospitalization, Disabling, Other)
  Sender: FDA-Public Use
  Company Number: US-009507513-1201USA02544

PATIENT
  Sex: Female

DRUGS (9)
  1. FOSAMAX [Suspect]
     Indication: OSTEOPOROSIS
     Dosage: 70 MG, UNK
     Route: 048
     Dates: start: 20071128
  2. FOSAMAX [Suspect]
     Route: 048
  3. ALENDRONATE SODIUM [Suspect]
     Indication: OSTEOPOROSIS
     Dosage: 70 MG, UNK
     Dates: start: 20080228
  4. METFORMIN [Concomitant]
     Indication: DIABETES MELLITUS
     Dosage: 100 UNK, UNK
     Dates: start: 20071128, end: 20080128
  5. GLIPIZIDE [Concomitant]
     Indication: DIABETES MELLITUS
     Dosage: 5 UNK, UNK
     Dates: start: 20071127, end: 20090128
  6. JANUVIA [Concomitant]
     Indication: DIABETES MELLITUS
     Dosage: 25 MG, UNK
     Dates: start: 20080526, end: 20080603
  7. LANTUS [Concomitant]
     Indication: DIABETES MELLITUS
     Dosage: 100 UNK, UNK
     Dates: start: 20080721
  8. NOVOLOG [Concomitant]
     Indication: DIABETES MELLITUS
  9. FLUTICASONE [Concomitant]
     Indication: SEASONAL ALLERGY
     Dosage: UNK
     Route: 045
     Dates: start: 20071204

REACTIONS (32)
  - Femur fracture [Unknown]
  - Intramedullary rod insertion [Unknown]
  - Convulsion [Not Recovered/Not Resolved]
  - Respiratory failure [Recovered/Resolved]
  - Renal failure acute [Recovered/Resolved]
  - Hemiparesis [Not Recovered/Not Resolved]
  - Cerebrovascular accident [Not Recovered/Not Resolved]
  - Acidosis [Recovered/Resolved]
  - Urinary tract infection [Recovered/Resolved]
  - Pelvic fracture [Recovering/Resolving]
  - Low turnover osteopathy [Not Recovered/Not Resolved]
  - Skin ulcer [Unknown]
  - Blood triglycerides increased [Not Recovered/Not Resolved]
  - Thrombosis [Unknown]
  - Asthma [Not Recovered/Not Resolved]
  - Dementia [Not Recovered/Not Resolved]
  - Bipolar disorder [Not Recovered/Not Resolved]
  - Pain [Not Recovered/Not Resolved]
  - Depression [Not Recovered/Not Resolved]
  - Blood cholesterol increased [Not Recovered/Not Resolved]
  - Chest pain [Unknown]
  - Cardiac disorder [Unknown]
  - Fluid retention [Unknown]
  - Hypertension [Not Recovered/Not Resolved]
  - Fall [Unknown]
  - Parkinson^s disease [Not Recovered/Not Resolved]
  - Rheumatoid arthritis [Not Recovered/Not Resolved]
  - Normal pressure hydrocephalus [Not Recovered/Not Resolved]
  - Atrial flutter [Unknown]
  - Hysterectomy [Unknown]
  - Carpal tunnel syndrome [Unknown]
  - Gastrooesophageal reflux disease [Not Recovered/Not Resolved]
